FAERS Safety Report 5844646-2 (Version None)
Quarter: 2008Q3

REPORT INFORMATION
  Report Type: 
  Country: None (occurrence: None)
  Receive Date: 20080812
  Receipt Date: 20080804
  Transmission Date: 20090109
  Serious: Yes (Hospitalization)
  Sender: FDA-Public Use
  Company Number: 2008001913

PATIENT
  Age: 67 Year
  Sex: Female

DRUGS (2)
  1. TARCEVA [Suspect]
     Dosage: 150 MG, QD, ORAL
     Route: 048
     Dates: start: 20070101
  2. TARCEVA [Suspect]
     Dosage: 150 MG, QD, ORAL
     Route: 048
     Dates: start: 20071201

REACTIONS (2)
  - PLEURAL EFFUSION [None]
  - RASH [None]
